FAERS Safety Report 5823971-5 (Version None)
Quarter: 2008Q3

REPORT INFORMATION
  Report Type: 
  Country: None (occurrence: None)
  Receive Date: 20080728
  Receipt Date: 20071123
  Transmission Date: 20090109
  Serious: No
  Sender: FDA-Public Use
  Company Number: FR-BAYER-200717375GPV

PATIENT
  Age: 71 Year
  Sex: Male

DRUGS (1)
  1. SORAFENIB [Suspect]
     Indication: METASTATIC RENAL CELL CARCINOMA
     Dosage: TOTAL DAILY DOSE: 800 MG  UNIT DOSE: 400 MG
     Route: 048

REACTIONS (3)
  - CEREBRAL HAEMORRHAGE [None]
  - HEMIPLEGIA [None]
  - HYPERTENSION [None]
